FAERS Safety Report 10343348 (Version 1)
Quarter: 2014Q3

REPORT INFORMATION
  Report Type: Spontaneous
  Country: US (occurrence: US)
  Receive Date: 20140725
  Receipt Date: 20140725
  Transmission Date: 20150326
  Serious: No
  Sender: FDA-Public Use
  Company Number: US-BAYER-2014-111996

PATIENT
  Age: 39 Year
  Sex: Female

DRUGS (1)
  1. MIRENA [Suspect]
     Active Substance: LEVONORGESTREL
     Dosage: DAILY DOSE 20 MCG/24HR
     Route: 015
     Dates: start: 2009, end: 20140714

REACTIONS (4)
  - Presyncope [None]
  - Complication of device insertion [None]
  - Complication of device removal [None]
  - Presyncope [None]

NARRATIVE: CASE EVENT DATE: 2009
